FAERS Safety Report 8602466-X (Version None)
Quarter: 2012Q3

REPORT INFORMATION
  Report Type: 
  Country: None (occurrence: None)
  Receive Date: 20120817
  Receipt Date: 20120808
  Transmission Date: 20120928
  Serious: Yes (Other)
  Sender: FDA-Public Use
  Company Number: US-ASTRAZENECA-2012SE56295

PATIENT
  Age: 69 Year
  Sex: Male

DRUGS (5)
  1. CARVEDILOL [Concomitant]
  2. ATORVASTATIN [Concomitant]
  3. BRILINTA [Suspect]
     Route: 048
  4. LISINOPRIL [Concomitant]
     Route: 048
  5. ASPIRIN [Concomitant]

REACTIONS (2)
  - THERAPEUTIC RESPONSE DECREASED [None]
  - CHEST PAIN [None]
